FAERS Safety Report 4653150-9 (Version None)
Quarter: 2005Q2

REPORT INFORMATION
  Report Type: 
  Country: None (occurrence: None)
  Receive Date: 20050503
  Receipt Date: 20050420
  Transmission Date: 20051028
  Serious: Yes (Other)
  Sender: FDA-Public Use
  Company Number: 2005062863

PATIENT
  Age: 38 Year
  Sex: Female
  Weight: 78.4723 kg

DRUGS (5)
  1. BEXTRA [Suspect]
     Indication: INFLAMMATION
     Dosage: 20 MG (20 MG, 1 IN 1D), ORAL
     Route: 048
     Dates: start: 20030101
  2. ALPRAZOLAM [Concomitant]
  3. OXYCODONE HCL [Concomitant]
  4. TIZANIDINE HYDROCHLORIDE (TIZANTIDINE HYDROCHLORIDE) [Concomitant]
  5. ZOLPIDEM TARTRATE [Concomitant]

REACTIONS (3)
  - COLONIC POLYP [None]
  - CONSTIPATION [None]
  - HAEMATOCHEZIA [None]
